FAERS Safety Report 5509339-X (Version None)
Quarter: 2007Q4

REPORT INFORMATION
  Report Type: 
  Country: None (occurrence: None)
  Receive Date: 20071106
  Receipt Date: 20071024
  Transmission Date: 20080405
  Serious: Yes (Other)
  Sender: FDA-Public Use
  Company Number: 2007333711

PATIENT
  Age: 7 Year
  Sex: Female

DRUGS (2)
  1. LISTERINE AGENT COOL BLUE GLACIER MINT (NO ACTIVE INGREDIENT) [Suspect]
     Indication: DENTAL DISORDER PROPHYLAXIS
     Dosage: 3 TIMES A DAY, ORAL
     Route: 048
     Dates: end: 20070501
  2. ZYRTEC [Concomitant]

REACTIONS (14)
  - ABDOMINAL PAIN UPPER [None]
  - CHILLS [None]
  - DRUG INEFFECTIVE [None]
  - DYSGEUSIA [None]
  - FEELING ABNORMAL [None]
  - HOT FLUSH [None]
  - HYPERHIDROSIS [None]
  - MIDDLE INSOMNIA [None]
  - NAUSEA [None]
  - ORAL INTAKE REDUCED [None]
  - TOOTH DISORDER [None]
  - TOOTH EXTRACTION [None]
  - TREMOR [None]
  - WEIGHT DECREASED [None]
